FAERS Safety Report 9281800 (Version 2)
Quarter: 2013Q4

REPORT INFORMATION
  Report Type: Spontaneous
  Country: US (occurrence: US)
  Receive Date: 20130510
  Receipt Date: 20131115
  Transmission Date: 20140711
  Serious: Yes (Hospitalization)
  Sender: FDA-Public Use
  Company Number: US-B.I. PHARMACEUTICALS,INC./RIDGEFIELD-2013-BI-13051BP

PATIENT
  Age: 81 Year
  Sex: Male
  Weight: 90.72 kg

DRUGS (11)
  1. PRADAXA [Suspect]
     Dates: start: 20110425, end: 20111107
  2. METOPROLOL [Concomitant]
  3. LIPITOR [Concomitant]
  4. HYDROCHLOROTHIAZIDE [Concomitant]
  5. NITROGLYCERIN [Concomitant]
  6. GEMFIBROZIL [Concomitant]
  7. DIOVAN [Concomitant]
  8. ZINC [Concomitant]
  9. UROXATRAL [Concomitant]
  10. BUSPIRONE [Concomitant]
  11. PAROXETINE [Concomitant]

REACTIONS (5)
  - Gastrointestinal haemorrhage [Recovered/Resolved]
  - Anaemia [Unknown]
  - Renal failure acute [Unknown]
  - Rhabdomyolysis [Unknown]
  - Fall [Unknown]
